FAERS Safety Report 20009054 (Version 2)
Quarter: 2021Q4

REPORT INFORMATION
  Report Type: Report from Study
  Country: CO (occurrence: CO)
  Receive Date: 20211029
  Receipt Date: 20211120
  Transmission Date: 20220303
  Serious: Yes (Hospitalization, Other)
  Sender: FDA-Public Use
  Company Number: CO-ABBVIE-21K-036-4141034-00

PATIENT
  Sex: Female
  Weight: 73 kg

DRUGS (2)
  1. ZEMPLAR [Suspect]
     Active Substance: PARICALCITOL
     Indication: Hyperparathyroidism secondary
     Route: 042
     Dates: start: 20190121, end: 20210913
  2. ZEMPLAR [Suspect]
     Active Substance: PARICALCITOL
     Indication: Chronic kidney disease

REACTIONS (7)
  - Pleural disorder [Recovering/Resolving]
  - Pulmonary oedema [Recovering/Resolving]
  - Spleen disorder [Recovering/Resolving]
  - Pancreatic disorder [Recovering/Resolving]
  - Wound [Recovering/Resolving]
  - Bacterial infection [Recovering/Resolving]
  - Malaise [Not Recovered/Not Resolved]

NARRATIVE: CASE EVENT DATE: 20210101
